FAERS Safety Report 20070371 (Version 1)
Quarter: 2021Q4

REPORT INFORMATION
  Report Type: Spontaneous
  Country: AU (occurrence: AU)
  Receive Date: 20211115
  Receipt Date: 20211115
  Transmission Date: 20220303
  Serious: Yes (Hospitalization, Other)
  Sender: FDA-Public Use
  Company Number: AU-HQ SPECIALTY-AU-2016INT000136

PATIENT
  Age: 64 Year
  Sex: Male

DRUGS (6)
  1. DEXMEDETOMIDINE HYDROCHLORIDE [Suspect]
     Active Substance: DEXMEDETOMIDINE HYDROCHLORIDE
     Indication: Sedative therapy
     Dosage: MAXIMAL RATE OF 1 MG/KG/H
     Route: 065
  2. DEXMEDETOMIDINE HYDROCHLORIDE [Suspect]
     Active Substance: DEXMEDETOMIDINE HYDROCHLORIDE
     Dosage: 0.8 MG/KG/H
     Route: 065
  3. NEOSTIGMINE [Suspect]
     Active Substance: NEOSTIGMINE
     Indication: Product used for unknown indication
     Dosage: 2.5 MG OVER 5 HOURS
     Route: 042
  4. NEOSTIGMINE [Suspect]
     Active Substance: NEOSTIGMINE
     Dosage: 1 MG OVER 20 MINUTES
     Route: 042
  5. NEOSTIGMINE [Suspect]
     Active Substance: NEOSTIGMINE
     Dosage: 2 MG OVER 20 MINUTES
     Route: 042
  6. UNSPECIFIED INGREDIENT [Suspect]
     Active Substance: UNSPECIFIED INGREDIENT
     Indication: Product used for unknown indication
     Dosage: UNK
     Route: 065

REACTIONS (4)
  - Drug interaction [Recovered/Resolved]
  - Sinus bradycardia [Recovered/Resolved]
  - Hypotension [Recovered/Resolved]
  - Intestinal pseudo-obstruction [Recovered/Resolved]
